FAERS Safety Report 7460181-2 (Version None)
Quarter: 2011Q2

REPORT INFORMATION
  Report Type: 
  Country: None (occurrence: None)
  Receive Date: 20110505
  Receipt Date: 20110428
  Transmission Date: 20111010
  Serious: Yes (Hospitalization, Other)
  Sender: FDA-Public Use
  Company Number: IN-ROCHE-768582

PATIENT
  Sex: Male
  Weight: 71 kg

DRUGS (4)
  1. AMLODIPINE [Concomitant]
     Dates: start: 20100917
  2. INTERFERON ALFA [Suspect]
     Indication: METASTATIC RENAL CELL CARCINOMA
     Dosage: DOSE: 9 MILLION IU
     Route: 058
     Dates: start: 20100910, end: 20110329
  3. BEVACIZUMAB [Suspect]
     Indication: METASTATIC RENAL CELL CARCINOMA
     Route: 042
     Dates: start: 20100910, end: 20110407
  4. INTERFERON ALFA [Suspect]
     Dosage: 9 MILLION IU.
     Route: 058
     Dates: start: 20110407

REACTIONS (2)
  - LOWER RESPIRATORY TRACT INFECTION [None]
  - HAEMOPTYSIS [None]
